FAERS Safety Report 6172838-4 (Version None)
Quarter: 2009Q2

REPORT INFORMATION
  Report Type: 
  Country: None (occurrence: None)
  Receive Date: 20090430
  Receipt Date: 20090426
  Transmission Date: 20091009
  Serious: Yes (Other)
  Sender: FDA-Public Use
  Company Number: IL-BAYER-200919487GPV

PATIENT
  Age: 81 Year
  Sex: Female

DRUGS (9)
  1. NEXAVAR [Suspect]
     Indication: METASTATIC RENAL CELL CARCINOMA
     Dosage: TOTAL DAILY DOSE: 400 MG
     Route: 048
  2. LOPRESOR [Concomitant]
     Indication: HYPERTENSION
     Dosage: TOTAL DAILY DOSE: 190 MG
     Route: 048
  3. OSMO-ADALAT [Concomitant]
     Indication: HYPERTENSION
     Route: 065
  4. MICROPIRIN [Concomitant]
     Indication: ISCHAEMIC HEART DISEASE PROPHYLAXIS
     Route: 048
  5. ZOMETA [Concomitant]
     Indication: METASTASES TO BONE
     Route: 042
  6. DIOVAN HCT [Concomitant]
     Indication: HYPERTENSION
     Route: 048
  7. URSOLIT [Concomitant]
     Indication: BILIARY CIRRHOSIS
     Route: 048
  8. LOSEC [Concomitant]
     Indication: DYSPEPSIA
     Route: 048
  9. ELTROXIN [Concomitant]
     Indication: HYPOTHYROIDISM
     Route: 048

REACTIONS (5)
  - HEARING IMPAIRED [None]
  - HYPERTENSION [None]
  - RASH GENERALISED [None]
  - SYNCOPE [None]
  - VISUAL IMPAIRMENT [None]
